FAERS Safety Report 17275387 (Version 1)
Quarter: 2020Q1

REPORT INFORMATION
  Report Type: Spontaneous
  Country: US (occurrence: US)
  Receive Date: 20200116
  Receipt Date: 20200116
  Transmission Date: 20200409
  Serious: Yes (Other)
  Sender: FDA-Public Use
  Company Number: US-TEVA-2020-US-1169767

PATIENT

DRUGS (2)
  1. IGG [Suspect]
     Active Substance: HUMAN IMMUNOGLOBULIN G
     Route: 058
  2. CINQAIR [Suspect]
     Active Substance: RESLIZUMAB
     Route: 042

REACTIONS (4)
  - Flushing [Recovered/Resolved]
  - Neurological symptom [Recovered/Resolved]
  - Transient ischaemic attack [Unknown]
  - Feeling abnormal [Recovered/Resolved]
